FAERS Safety Report 15819691 (Version 5)
Quarter: 2019Q1

REPORT INFORMATION
  Report Type: Report from Study
  Country: GB (occurrence: GB)
  Receive Date: 20190114
  Receipt Date: 20190222
  Transmission Date: 20190417
  Serious: Yes (Death, Hospitalization)
  Sender: FDA-Public Use
  Company Number: GB-IPSEN BIOPHARMACEUTICALS, INC.-2018-19191

PATIENT
  Age: 84 Year
  Sex: Male

DRUGS (1)
  1. SOMATULINE AUTOGEL 90MG [Suspect]
     Active Substance: LANREOTIDE ACETATE
     Indication: ACROMEGALY
     Dosage: 90 MG/0.3 ML (PRE-FILLED SYRINGE)
     Route: 058

REACTIONS (5)
  - Pneumonia [Recovered/Resolved]
  - Death [Fatal]
  - Oedema peripheral [Unknown]
  - Pneumonia [Not Recovered/Not Resolved]
  - Product dose omission [Unknown]

NARRATIVE: CASE EVENT DATE: 2018
